FAERS Safety Report 10384909 (Version 1)
Quarter: 2014Q3

REPORT INFORMATION
  Report Type: Other
  Country: FR (occurrence: FR)
  Receive Date: 20140814
  Receipt Date: 20140814
  Transmission Date: 20150326
  Serious: Yes (Other)
  Sender: FDA-Public Use
  Company Number: FR-PURDUE-DEU-2014-0015098

PATIENT
  Age: 40 Year
  Sex: Male

DRUGS (1)
  1. NON-PMN MORPHINE SULFATE [Suspect]
     Active Substance: MORPHINE SULFATE
     Indication: SUICIDE ATTEMPT
     Dosage: 1000 MG, UNK
     Route: 042

REACTIONS (7)
  - Suicide attempt [Unknown]
  - Intentional overdose [Recovered/Resolved]
  - Miosis [Recovered/Resolved]
  - Memory impairment [Recovering/Resolving]
  - Altered state of consciousness [Recovered/Resolved]
  - Respiratory depression [Recovered/Resolved]
  - Hypoxia [Recovered/Resolved]
